FAERS Safety Report 6143143-7 (Version None)
Quarter: 2009Q2

REPORT INFORMATION
  Report Type: 
  Country: None (occurrence: None)
  Receive Date: 20090403
  Receipt Date: 20090330
  Transmission Date: 20091009
  Serious: Yes (Life-Threatening, Hospitalization)
  Sender: FDA-Public Use
  Company Number: JP-BAYER-200910618BYL

PATIENT
  Age: 59 Year
  Sex: Male
  Weight: 72 kg

DRUGS (1)
  1. NEXAVAR [Suspect]
     Indication: RENAL CELL CARCINOMA STAGE IV
     Dosage: TOTAL DAILY DOSE: 400 MG  UNIT DOSE: 200 MG
     Route: 048
     Dates: start: 20090216, end: 20090301

REACTIONS (2)
  - CEREBRAL HAEMORRHAGE [None]
  - THROMBOCYTOPENIA [None]
